FAERS Safety Report 6894574-9 (Version None)
Quarter: 2010Q3

REPORT INFORMATION
  Report Type: 
  Country: None (occurrence: None)
  Receive Date: 20100802
  Receipt Date: 20100720
  Transmission Date: 20110219
  Serious: Yes (Hospitalization)
  Sender: FDA-Public Use
  Company Number: PHHY2010IT48307

PATIENT
  Sex: Female

DRUGS (2)
  1. VOLTADVANCE [Suspect]
     Indication: NECK PAIN
     Dosage: 25 MG, QD
     Route: 048
     Dates: start: 20100715, end: 20100715
  2. YASMIN [Concomitant]

REACTIONS (3)
  - ERYTHEMA [None]
  - EXPRESSIVE LANGUAGE DISORDER [None]
  - TREMOR [None]
